FAERS Safety Report 4297537-5 (Version None)
Quarter: 2004Q1

REPORT INFORMATION
  Report Type: 
  Country: None (occurrence: None)
  Receive Date: 20040126
  Receipt Date: 20030829
  Transmission Date: 20041129
  Serious: No
  Sender: FDA-Public Use
  Company Number: USA030945867

PATIENT
  Age: 10 Year
  Sex: Male

DRUGS (2)
  1. STRATTERA [Suspect]
     Indication: ATTENTION DEFICIT/HYPERACTIVITY DISORDER
     Dosage: 40 MG/IN THE EVENING
     Dates: start: 20030821
  2. DEXTROAMPETAMINE [Concomitant]

REACTIONS (3)
  - DYSPNOEA EXERTIONAL [None]
  - ERYTHEMA [None]
  - FATIGUE [None]
